FAERS Safety Report 16994133 (Version 1)
Quarter: 2019Q4

REPORT INFORMATION
  Report Type: Spontaneous
  Country: US (occurrence: US)
  Receive Date: 20191105
  Receipt Date: 20191105
  Transmission Date: 20200122
  Serious: No
  Sender: FDA-Public Use
  Company Number: US-GLAXOSMITHKLINE-US2019196099

PATIENT
  Age: 50 Year
  Sex: Male

DRUGS (4)
  1. ALLI [Suspect]
     Active Substance: ORLISTAT
     Dosage: UNK, BID
  2. ALLI [Suspect]
     Active Substance: ORLISTAT
     Dosage: UNK, BID
  3. ALLI [Suspect]
     Active Substance: ORLISTAT
     Indication: WEIGHT LOSS DIET
     Dosage: UNK, BID
  4. ALLI [Suspect]
     Active Substance: ORLISTAT
     Dosage: UNK, BID

REACTIONS (3)
  - Abnormal faeces [Unknown]
  - Steatorrhoea [Unknown]
  - Constipation [Unknown]
